FAERS Safety Report 22959615 (Version 3)
Quarter: 2024Q1

REPORT INFORMATION
  Report Type: Report from Study
  Country: US (occurrence: US)
  Receive Date: 20230920
  Receipt Date: 20240129
  Transmission Date: 20240409
  Serious: Yes (Other)
  Sender: FDA-Public Use
  Company Number: US-NOVOPROD-1115906

PATIENT
  Age: 95 Year
  Sex: Female

DRUGS (2)
  1. FIASP [Suspect]
     Active Substance: INSULIN ASPART
     Indication: Type 1 diabetes mellitus
     Dosage: 34 IU, QD
     Route: 058
  2. FIASP [Suspect]
     Active Substance: INSULIN ASPART
     Dosage: 3 UNITS
     Route: 058

REACTIONS (5)
  - Device defective [Recovered/Resolved]
  - Device leakage [Not Recovered/Not Resolved]
  - Blood glucose increased [Recovered/Resolved]
  - Liquid product physical issue [Recovered/Resolved]
  - Drug ineffective [Recovered/Resolved]
